FAERS Safety Report 11713937 (Version 6)
Quarter: 2018Q3

REPORT INFORMATION
  Report Type: Report from Study
  Country: CA (occurrence: CA)
  Receive Date: 20151109
  Receipt Date: 20180820
  Transmission Date: 20181010
  Serious: Yes (Other)
  Sender: FDA-Public Use
  Company Number: PHHY2014CA151466

PATIENT
  Age: 53 Year
  Sex: Female

DRUGS (3)
  1. ACLASTA [Suspect]
     Active Substance: ZOLEDRONIC ACID
     Dosage: 5 MG, UNK
     Route: 042
     Dates: start: 20141126
  2. ACLASTA [Suspect]
     Active Substance: ZOLEDRONIC ACID
     Indication: OSTEOPOROSIS
     Dosage: 5 MG, UNK
     Route: 042
     Dates: start: 20131202
  3. ACLASTA [Suspect]
     Active Substance: ZOLEDRONIC ACID
     Dosage: 5 MG, UNK
     Route: 042
     Dates: start: 20151209

REACTIONS (14)
  - Rib fracture [Unknown]
  - Tooth injury [Unknown]
  - Tooth loss [Unknown]
  - Back pain [Unknown]
  - Arthralgia [Unknown]
  - Hypersensitivity [Unknown]
  - Toothache [Unknown]
  - Musculoskeletal chest pain [Unknown]
  - Fall [Unknown]
  - Gingival disorder [Unknown]
  - General physical health deterioration [Unknown]
  - Tooth disorder [Unknown]
  - Joint dislocation [Unknown]
  - Bone density abnormal [Unknown]

NARRATIVE: CASE EVENT DATE: 20131231
